FAERS Safety Report 20855237 (Version 2)
Quarter: 2022Q2

REPORT INFORMATION
  Report Type: Spontaneous
  Country: PK (occurrence: PK)
  Receive Date: 20220520
  Receipt Date: 20220531
  Transmission Date: 20220721
  Serious: Yes (Other)
  Sender: FDA-Public Use
  Company Number: PK-BAYER-2022A071303

PATIENT
  Age: 65 Year
  Sex: Male

DRUGS (1)
  1. SORAFENIB [Suspect]
     Active Substance: SORAFENIB
     Indication: Hepatocellular carcinoma
     Dosage: 400 MG, QD

REACTIONS (10)
  - Acute on chronic liver failure [None]
  - Hepatitis acute [None]
  - Drug reaction with eosinophilia and systemic symptoms [None]
  - Ischaemic hepatitis [None]
  - Metabolic disorder [None]
  - Biopsy liver [None]
  - Portal vein flow decreased [None]
  - Hypersensitivity [None]
  - Vasoconstriction [None]
  - Off label use [None]
